FAERS Safety Report 9822403 (Version 2)
Quarter: 2014Q1

REPORT INFORMATION
  Report Type: Report from Study
  Country: FR (occurrence: FR)
  Receive Date: 20140116
  Receipt Date: 20140116
  Transmission Date: 20141002
  Serious: Yes (Hospitalization, Other)
  Sender: FDA-Public Use
  Company Number: FR-VERTEX PHARMACEUTICAL INC.-000000000000000625

PATIENT
  Age: 54 Year
  Sex: Female
  Weight: 72 kg

DRUGS (3)
  1. VX-950 (TELAPREVIR) [Suspect]
     Indication: HEPATITIS C
     Dosage: DOSAGE FORM: TABLET
  2. PEGASYS [Concomitant]
     Indication: HEPATITIS C
  3. COPEGUS [Concomitant]
     Indication: HEPATITIS C

REACTIONS (8)
  - Arteriovenous fistula [Recovered/Resolved]
  - Leukopenia [Unknown]
  - Portal hypertension [Unknown]
  - Varices oesophageal [Unknown]
  - Thrombocytopenia [Unknown]
  - Blood creatinine increased [Unknown]
  - Hyperbilirubinaemia [Unknown]
  - Off label use [Unknown]
